FAERS Safety Report 5392276-1 (Version None)
Quarter: 2007Q3

REPORT INFORMATION
  Report Type: 
  Country: None (occurrence: None)
  Receive Date: 20070720
  Receipt Date: 20070716
  Transmission Date: 20080115
  Serious: Yes (Death)
  Sender: FDA-Public Use
  Company Number: BW-ABBOTT-07P-019-0374650-00

PATIENT
  Sex: Male

DRUGS (3)
  1. KALETRA [Suspect]
     Indication: DRUG EXPOSURE DURING PREGNANCY
     Dosage: 133.3/33.3 MG
     Route: 048
     Dates: start: 20070227, end: 20070611
  2. KALETRA [Suspect]
     Indication: HIV INFECTION
  3. LAMIVUDINE + ZIDOVUDINE [Concomitant]
     Indication: DRUG EXPOSURE DURING PREGNANCY
     Dosage: 300/150 MG
     Route: 048
     Dates: start: 20070227, end: 20070611

REACTIONS (1)
  - DEATH [None]
